FAERS Safety Report 6691637-8 (Version None)
Quarter: 2010Q2

REPORT INFORMATION
  Report Type: 
  Country: None (occurrence: None)
  Receive Date: 20100422
  Receipt Date: 20090325
  Transmission Date: 20101027
  Serious: No
  Sender: FDA-Public Use
  Company Number: US-ASTRAZENECA-2009UW07771

PATIENT
  Sex: Male
  Weight: 81.6 kg

DRUGS (4)
  1. METOPROLOL TARTRATE [Suspect]
     Route: 048
  2. ZOCOR [Concomitant]
  3. ASPIRIN [Concomitant]
  4. NEXIUM [Concomitant]

REACTIONS (1)
  - BLOOD PRESSURE DIASTOLIC INCREASED [None]
